FAERS Safety Report 12666343 (Version 3)
Quarter: 2016Q4

REPORT INFORMATION
  Report Type: Spontaneous
  Country: BR (occurrence: BR)
  Receive Date: 20160818
  Receipt Date: 20161028
  Transmission Date: 20170207
  Serious: Yes (Hospitalization)
  Sender: FDA-Public Use
  Company Number: BR-AMGEN-BRASP2016105735

PATIENT
  Sex: Male

DRUGS (1)
  1. ENBREL [Suspect]
     Active Substance: ETANERCEPT
     Indication: PRODUCT USED FOR UNKNOWN INDICATION
     Dosage: UNK
     Route: 065
     Dates: start: 201308

REACTIONS (5)
  - Injection site infection [Not Recovered/Not Resolved]
  - Pyrexia [Unknown]
  - Mycobacterium test positive [Not Recovered/Not Resolved]
  - Erythema nodosum [Unknown]
  - Arthralgia [Unknown]

NARRATIVE: CASE EVENT DATE: 20160726
